FAERS Safety Report 20174664 (Version 1)
Quarter: 2021Q4

REPORT INFORMATION
  Report Type: Spontaneous
  Country: US (occurrence: US)
  Receive Date: 20211213
  Receipt Date: 20211213
  Transmission Date: 20220304
  Serious: Yes (Other)
  Sender: FDA-Public Use
  Company Number: US-MLMSERVICE-20211126-3240570-1

PATIENT
  Age: 27 Year
  Sex: Female

DRUGS (3)
  1. MYCOPHENOLATE MOFETIL [Suspect]
     Active Substance: MYCOPHENOLATE MOFETIL
     Indication: Product used for unknown indication
     Dates: start: 2019, end: 2020
  2. PREDNISONE [Concomitant]
     Active Substance: PREDNISONE
     Dates: start: 2019
  3. TACROLIMUS [Concomitant]
     Active Substance: TACROLIMUS
     Dates: start: 2019

REACTIONS (2)
  - Colitis [Unknown]
  - Cryptitis [Recovered/Resolved]

NARRATIVE: CASE EVENT DATE: 20200101
